APPROVED DRUG PRODUCT: M.V.I. ADULT (PHARMACY BULK PACKAGE)
Active Ingredient: ASCORBIC ACID; BIOTIN; CYANOCOBALAMIN; DEXPANTHENOL; ERGOCALCIFEROL; FOLIC ACID; NIACINAMIDE; PYRIDOXINE HYDROCHLORIDE; RIBOFLAVIN 5'-PHOSPHATE SODIUM; THIAMINE HYDROCHLORIDE; VITAMIN A; VITAMIN E; VITAMIN K
Strength: 200MG/5ML;0.06MG/5ML;0.005MG/5ML;15MG/5ML;0.005MG/5ML;0.6MG/5ML;40MG/5ML;6MG/5ML;3.6MG/5ML;6MG/5ML;1MG/5ML;10MG/5ML;0.15MG/5ML
Dosage Form/Route: INJECTABLE;INTRAVENOUS
Application: N021643 | Product #001
Applicant: HOSPIRA INC
Approved: Feb 18, 2004 | RLD: Yes | RS: No | Type: DISCN